FAERS Safety Report 14913592 (Version 1)
Quarter: 2018Q2

REPORT INFORMATION
  Report Type: Spontaneous
  Country: US (occurrence: US)
  Receive Date: 20180518
  Receipt Date: 20180518
  Transmission Date: 20180711
  Serious: Yes (Other)
  Sender: FDA-Public Use
  Company Number: US-COLLEGIUM PHARMACEUTICAL, INC.-2018CGM00153

PATIENT
  Age: 63 Year
  Sex: Female

DRUGS (2)
  1. XTAMPZA ER [Suspect]
     Active Substance: OXYCODONE
     Indication: SPINAL COLUMN STENOSIS
  2. XTAMPZA ER [Suspect]
     Active Substance: OXYCODONE
     Indication: INTERVERTEBRAL DISC DEGENERATION
     Dosage: 13.5 MG, 2X/DAY
     Route: 048
     Dates: start: 20171221

REACTIONS (3)
  - Ileostomy [Unknown]
  - Medication residue present [Unknown]
  - Drug ineffective [Recovered/Resolved]

NARRATIVE: CASE EVENT DATE: 201802
